FAERS Safety Report 7753455 (Version 2)
Quarter: 2013Q3

REPORT INFORMATION
  Report Type: Spontaneous
  Country: US (occurrence: US)
  Receive Date: 20110110
  Receipt Date: 20130806
  Transmission Date: 20140515
  Serious: Yes (Other)
  Sender: FDA-Public Use
  Company Number: US-JNJFOC-20100801701

PATIENT
  Age: 39 Year
  Sex: Male

DRUGS (2)
  1. LEVAQUIN [Suspect]
     Indication: PROSTATITIS
     Route: 048
     Dates: start: 20030101, end: 20041231
  2. LEVAQUIN [Suspect]
     Indication: PYOSPERMIA
     Route: 048
     Dates: start: 20030101, end: 20041231

REACTIONS (6)
  - Tendon rupture [Unknown]
  - Tendon rupture [Unknown]
  - Epicondylitis [Not Recovered/Not Resolved]
  - Epicondylitis [Not Recovered/Not Resolved]
  - Muscle strain [Unknown]
  - Tendonitis [Unknown]
